FAERS Safety Report 6179858-4 (Version None)
Quarter: 2009Q2

REPORT INFORMATION
  Report Type: 
  Country: None (occurrence: None)
  Receive Date: 20090501
  Receipt Date: 20090417
  Transmission Date: 20091009
  Serious: Yes (Life-Threatening, Hospitalization)
  Sender: FDA-Public Use
  Company Number: 1-18151402

PATIENT
  Age: 19 Year
  Sex: Male
  Weight: 30.9353 kg

DRUGS (13)
  1. BUPHENYL [Suspect]
     Indication: AMINO ACID METABOLISM DISORDER
     Dosage: 3000 MG, 5 TIMES DAILY, OTHER
     Dates: start: 20010101
  2. BUPHENYL [Suspect]
  3. FLUCONAZOLE [Suspect]
     Dosage: 200 MG, ONCE DAILY, OTHER
  4. ROBINUL [Concomitant]
  5. TYLENOL (CAPLET) [Concomitant]
  6. TEGRETOL [Concomitant]
  7. NEBULIZED RACEMIC EPINEPHRINE [Concomitant]
  8. HEP FLUSH KIT [Concomitant]
  9. IBUPROFEN LIQUID [Concomitant]
  10. PREVACID [Concomitant]
  11. INDERAL [Concomitant]
  12. LEVOCANITINE [Concomitant]
  13. CITRULLINE PACKET [Concomitant]

REACTIONS (4)
  - AMMONIA INCREASED [None]
  - CARDIO-RESPIRATORY ARREST [None]
  - INCORRECT DOSE ADMINISTERED [None]
  - LETHARGY [None]
